FAERS Safety Report 8616730-1 (Version None)
Quarter: 2012Q3

REPORT INFORMATION
  Report Type: 
  Country: None (occurrence: None)
  Receive Date: 20120823
  Receipt Date: 20120816
  Transmission Date: 20120928
  Serious: Yes (Other)
  Sender: FDA-Public Use
  Company Number: BR-PFIZER INC-2012201753

PATIENT
  Age: 45 Year
  Sex: Female
  Weight: 62 kg

DRUGS (3)
  1. LATANOPROST [Suspect]
     Indication: GLAUCOMA
     Dosage: 1X/DAY
     Route: 047
     Dates: start: 20080810
  2. ATENOLOL [Concomitant]
     Indication: BLOOD PRESSURE
  3. LOSARTAN [Concomitant]
     Indication: BLOOD PRESSURE

REACTIONS (8)
  - BURNING SENSATION [None]
  - MEMORY IMPAIRMENT [None]
  - ASTHENIA [None]
  - BLOOD BLISTER [None]
  - HEART RATE INCREASED [None]
  - HEADACHE [None]
  - BLOOD PRESSURE INCREASED [None]
  - ACTIVITIES OF DAILY LIVING IMPAIRED [None]
